FAERS Safety Report 7180134-1 (Version None)
Quarter: 2010Q4

REPORT INFORMATION
  Report Type: 
  Country: None (occurrence: None)
  Receive Date: 20101221
  Receipt Date: 20101202
  Transmission Date: 20110411
  Serious: No
  Sender: FDA-Public Use
  Company Number: US-B.I. PHARMACEUTICALS,INC./RIDGEFIELD-2010-BP-13731BP

PATIENT
  Sex: Female

DRUGS (4)
  1. PRADAXA [Suspect]
     Indication: ATRIAL FIBRILLATION
     Dosage: 300 MG
     Route: 048
     Dates: start: 20101130, end: 20101201
  2. PRADAXA [Suspect]
     Dosage: 150 MG
     Route: 048
     Dates: start: 20101202
  3. WELCHOL [Concomitant]
     Indication: BLOOD CHOLESTEROL INCREASED
  4. LOVASTATIN [Concomitant]
     Indication: HYPERTENSION

REACTIONS (3)
  - EPISTAXIS [None]
  - HEADACHE [None]
  - NERVOUSNESS [None]
